FAERS Safety Report 18204820 (Version 1)
Quarter: 2020Q3

REPORT INFORMATION
  Report Type: Report from Study
  Country: ZA (occurrence: ZA)
  Receive Date: 20200827
  Receipt Date: 20200827
  Transmission Date: 20201103
  Serious: Yes (Other)
  Sender: FDA-Public Use
  Company Number: PHHY2017ZA203831

PATIENT
  Age: 40 Year
  Sex: Male

DRUGS (4)
  1. EXJADE [Suspect]
     Active Substance: DEFERASIROX
     Indication: THALASSAEMIA
     Dosage: 1750 MG, QD
     Route: 065
     Dates: start: 201709
  2. DESFERAL [Suspect]
     Active Substance: DEFEROXAMINE MESYLATE
     Indication: THALASSAEMIA
     Dosage: TIATRATION DOSE (3 TO 4 TIMES A WEEK )
     Route: 065
     Dates: start: 1984, end: 201712
  3. FERRIPROX [Concomitant]
     Active Substance: DEFERIPRONE
     Indication: THALASSAEMIA
     Dosage: 7 DF, QD
     Route: 065
     Dates: start: 2013
  4. EXJADE [Suspect]
     Active Substance: DEFERASIROX
     Dosage: 2000 MG, QD
     Route: 048
     Dates: start: 20200812

REACTIONS (2)
  - Weight increased [Unknown]
  - Serum ferritin increased [Unknown]

NARRATIVE: CASE EVENT DATE: 201801
